FAERS Safety Report 15278601 (Version 2)
Quarter: 2019Q2

REPORT INFORMATION
  Report Type: Report from Study
  Country: None (occurrence: DE)
  Receive Date: 20180815
  Receipt Date: 20190404
  Transmission Date: 20190711
  Serious: Yes (Other)
  Sender: FDA-Public Use
  Company Number: DE-ABBVIE-18K-062-2449715-00

PATIENT
  Sex: Female

DRUGS (1)
  1. HUMIRA [Suspect]
     Active Substance: ADALIMUMAB
     Indication: EXPOSURE VIA BODY FLUID
     Route: 050

REACTIONS (6)
  - Paternal drugs affecting foetus [Unknown]
  - Crohn^s disease [Unknown]
  - Immune system disorder [Unknown]
  - Weight fluctuation [Unknown]
  - Foetal exposure during pregnancy [Unknown]
  - Growth retardation [Unknown]

NARRATIVE: CASE EVENT DATE: 2017
